FAERS Safety Report 22077747 (Version 1)
Quarter: 2023Q1

REPORT INFORMATION
  Report Type: Spontaneous
  Country: US (occurrence: US)
  Receive Date: 20230309
  Receipt Date: 20230309
  Transmission Date: 20230417
  Serious: No
  Sender: FDA-Public Use
  Company Number: US-BRISTOL-MYERS SQUIBB COMPANY-2023-034093

PATIENT
  Age: 51 Year
  Sex: Male
  Weight: 151.05 kg

DRUGS (1)
  1. POMALYST [Suspect]
     Active Substance: POMALIDOMIDE
     Indication: Plasma cell myeloma
     Dosage: FREQUENCY: D 1-14 Q 28 DAYS
     Route: 048
     Dates: start: 20210127

REACTIONS (2)
  - Laboratory test abnormal [Unknown]
  - Off label use [Unknown]
